FAERS Safety Report 7017675-3 (Version None)
Quarter: 2010Q3

REPORT INFORMATION
  Report Type: 
  Country: None (occurrence: None)
  Receive Date: 20100927
  Receipt Date: 20100927
  Transmission Date: 20110219
  Serious: Yes (Other)
  Sender: FDA-Public Use
  Company Number: None

PATIENT
  Sex: Female
  Weight: 61.2356 kg

DRUGS (20)
  1. ZYRTEC [Suspect]
     Indication: MULTIPLE ALLERGIES
     Dosage: 10 MG. 1X DAY AT NIGHT PO
     Route: 048
     Dates: start: 19990101, end: 20100925
  2. ZYRTEC [Suspect]
     Indication: RHINITIS ALLERGIC
     Dosage: 10 MG. 1X DAY AT NIGHT PO
     Route: 048
     Dates: start: 19990101, end: 20100925
  3. SINGULAIR [Concomitant]
  4. ADVAIR DISKUS 100/50 [Concomitant]
  5. RHINOCORT [Concomitant]
  6. MUCINEX [Concomitant]
  7. LORAZEPAM [Concomitant]
  8. PREDNISONE [Concomitant]
  9. STARLIX [Concomitant]
  10. RECLAST [Concomitant]
  11. COZAAR [Concomitant]
  12. ATENOLOL [Concomitant]
  13. PROTONIX [Concomitant]
  14. CYMBALTA [Concomitant]
  15. MAGNESIUM [Concomitant]
  16. CALCIUM PLUS VITAMIN D [Concomitant]
  17. MULTIPLE VITAMIN [Concomitant]
  18. ASCORBIC ACID [Concomitant]
  19. COQ10 [Concomitant]
  20. FISH OIL [Concomitant]

REACTIONS (12)
  - ASTHMA [None]
  - CONDITION AGGRAVATED [None]
  - DRUG ADMINISTRATION ERROR [None]
  - MEDICATION ERROR [None]
  - MIDDLE INSOMNIA [None]
  - NASAL POLYPS [None]
  - PRURITUS [None]
  - PRURITUS GENERALISED [None]
  - RHINITIS [None]
  - WHEEZING [None]
  - WITHDRAWAL SYNDROME [None]
  - WRONG DRUG ADMINISTERED [None]
